FAERS Safety Report 9310401 (Version 2)
Quarter: 2013Q3

REPORT INFORMATION
  Report Type: Spontaneous
  Country: US (occurrence: US)
  Receive Date: 20130527
  Receipt Date: 20130705
  Transmission Date: 20140515
  Serious: Yes (Other)
  Sender: FDA-Public Use
  Company Number: US-PFIZER INC-2013158635

PATIENT
  Sex: Male

DRUGS (4)
  1. GLIPIZIDE [Suspect]
     Dosage: UNK
  2. METFORMIN HCL [Suspect]
     Dosage: UNK
  3. PREDNISONE [Suspect]
     Dosage: UNK
  4. LEVEMIR FLEXPEN [Suspect]
     Dosage: UNK

REACTIONS (1)
  - Hyperglycaemia [Unknown]
